FAERS Safety Report 5247642-1 (Version None)
Quarter: 2007Q1

REPORT INFORMATION
  Report Type: 
  Country: None (occurrence: None)
  Receive Date: 20070227
  Receipt Date: 20070216
  Transmission Date: 20070707
  Serious: Yes (Death, Hospitalization)
  Sender: FDA-Public Use
  Company Number: DE-PFIZER INC-2007009150

PATIENT
  Sex: Female

DRUGS (7)
  1. INSPRA [Suspect]
     Indication: MYOCARDIAL INFARCTION
     Route: 048
     Dates: start: 20070112, end: 20070122
  2. INSPRA [Suspect]
     Indication: CARDIAC FAILURE
  3. BISOPROLOL FUMARATE [Concomitant]
  4. LASIX [Concomitant]
     Dates: start: 20061201, end: 20061222
  5. LEVOTHYROXINE SODIUM [Concomitant]
  6. GODAMED [Concomitant]
  7. ACTRAPHANE HM [Concomitant]
     Route: 058

REACTIONS (5)
  - ACUTE HEPATIC FAILURE [None]
  - COAGULOPATHY [None]
  - GENERAL PHYSICAL HEALTH DETERIORATION [None]
  - NAUSEA [None]
  - RENAL FAILURE ACUTE [None]
